FAERS Safety Report 20952841 (Version 1)
Quarter: 2022Q2

REPORT INFORMATION
  Report Type: Spontaneous
  Country: TR (occurrence: TR)
  Receive Date: 20220613
  Receipt Date: 20220613
  Transmission Date: 20220720
  Serious: Yes (Other)
  Sender: FDA-Public Use
  Company Number: TR-ViiV Healthcare Limited-TR2022GSK092179

PATIENT

DRUGS (3)
  1. HEPATITIS B VIRUS VACCINE [Suspect]
     Active Substance: HEPATITIS B VIRUS VACCINE
     Indication: Prophylaxis
  2. HEPATITIS B VIRUS VACCINE [Suspect]
     Active Substance: HEPATITIS B VIRUS VACCINE
     Indication: Prophylaxis
  3. LAMIVUDINE [Suspect]
     Active Substance: LAMIVUDINE
     Indication: Chronic hepatitis B
     Dosage: UNK

REACTIONS (6)
  - Vaccination failure [Unknown]
  - Chronic hepatitis B [Recovered/Resolved]
  - Vertical infection transmission [Unknown]
  - Foetal exposure during pregnancy [Unknown]
  - Drug resistance [Unknown]
  - Therapy non-responder [Unknown]
